FAERS Safety Report 8213217-5 (Version None)
Quarter: 2012Q1

REPORT INFORMATION
  Report Type: 
  Country: None (occurrence: None)
  Receive Date: 20120315
  Receipt Date: 20120307
  Transmission Date: 20120608
  Serious: Yes (Hospitalization)
  Sender: FDA-Public Use
  Company Number: CHPA2012JP004541

PATIENT
  Sex: Female

DRUGS (1)
  1. PURSENNID [Suspect]
     Dosage: UNK, UNK
     Route: 048

REACTIONS (3)
  - FRACTURE [None]
  - FALL [None]
  - DIZZINESS [None]
